FAERS Safety Report 4326654-6 (Version None)
Quarter: 2004Q1

REPORT INFORMATION
  Report Type: 
  Country: None (occurrence: None)
  Receive Date: 20040329
  Receipt Date: 20040329
  Transmission Date: 20041129
  Serious: Yes (Other)
  Sender: FDA-Public Use
  Company Number: None

PATIENT
  Age: 56 Year
  Sex: Female
  Weight: 86.1834 kg

DRUGS (3)
  1. PAROXETINE 20 MG PAR PHARMACEUTICAL [Suspect]
     Indication: ANXIETY
     Dosage: 1 TABLET DAILY ORAL
     Route: 048
     Dates: start: 20031101, end: 20040326
  2. PAROXETINE 20 MG PAR PHARMACEUTICAL [Suspect]
     Indication: DEPRESSION
     Dosage: 1 TABLET DAILY ORAL
     Route: 048
     Dates: start: 20031101, end: 20040326
  3. PAROXETINE 20 MG PAR PHARMACEUTICAL [Suspect]
     Indication: MENOPAUSE
     Dosage: 1 TABLET DAILY ORAL
     Route: 048
     Dates: start: 20031101, end: 20040326

REACTIONS (3)
  - DRUG EFFECT DECREASED [None]
  - FEELING ABNORMAL [None]
  - PHARMACEUTICAL PRODUCT COMPLAINT [None]
